FAERS Safety Report 7584574-8 (Version None)
Quarter: 2011Q2

REPORT INFORMATION
  Report Type: 
  Country: None (occurrence: None)
  Receive Date: 20110630
  Receipt Date: 20110620
  Transmission Date: 20111010
  Serious: Yes (Hospitalization, Other)
  Sender: FDA-Public Use
  Company Number: US-ELI_LILLY_AND_COMPANY-US200910000593

PATIENT
  Sex: Female

DRUGS (12)
  1. CITRACAL [Concomitant]
  2. FORTEO [Suspect]
     Dosage: 20 UG, DAILY (1/D)
     Route: 065
  3. VITAMIN B-12 [Concomitant]
     Dosage: UNK, PRN
  4. PLAQUENIL [Concomitant]
  5. VITAMIN D [Concomitant]
     Dosage: UNK, PRN
  6. FORTEO [Suspect]
     Indication: OSTEOPOROSIS
     Dosage: 20 UG, DAILY (1/D)
     Route: 065
     Dates: start: 20090903
  7. ASPIRIN [Concomitant]
  8. SPIRONOLACTONE [Concomitant]
  9. FORTEO [Suspect]
     Dosage: 20 UG, DAILY (1/D)
     Route: 065
  10. FORTEO [Suspect]
     Dosage: 20 UG, QD
     Route: 065
  11. COREG [Concomitant]
  12. VITAMIN TAB [Concomitant]
     Dosage: UNK, QD

REACTIONS (26)
  - FALL [None]
  - HAEMORRHAGE [None]
  - HEAD INJURY [None]
  - BURSITIS [None]
  - WEIGHT INCREASED [None]
  - SPINAL FRACTURE [None]
  - LOWER EXTREMITY MASS [None]
  - INJECTION SITE HAEMORRHAGE [None]
  - PAIN [None]
  - ERYTHEMA [None]
  - ARTHRALGIA [None]
  - ARTHRITIS [None]
  - MOVEMENT DISORDER [None]
  - FATIGUE [None]
  - BACK PAIN [None]
  - LACERATION [None]
  - MIDDLE INSOMNIA [None]
  - ABDOMINAL DISCOMFORT [None]
  - SKIN HAEMORRHAGE [None]
  - CERVICAL SPINAL STENOSIS [None]
  - ALOPECIA [None]
  - DECREASED APPETITE [None]
  - HIP FRACTURE [None]
  - SPINAL COMPRESSION FRACTURE [None]
  - PRURITUS [None]
  - SKIN INJURY [None]
